FAERS Safety Report 7383448-5 (Version None)
Quarter: 2011Q1

REPORT INFORMATION
  Report Type: 
  Country: None (occurrence: None)
  Receive Date: 20110330
  Receipt Date: 20110321
  Transmission Date: 20110831
  Serious: Yes (Other)
  Sender: FDA-Public Use
  Company Number: NL-JNJFOC-20110307860

PATIENT
  Age: 46 Year
  Sex: Male

DRUGS (3)
  1. RISPERDAL [Suspect]
     Indication: PSYCHOTIC DISORDER
     Route: 065
  2. ORAP [Suspect]
     Indication: PSYCHOTIC DISORDER
     Route: 065
  3. IMPROMEN [Suspect]
     Indication: PSYCHOTIC DISORDER
     Route: 065

REACTIONS (2)
  - HAEMORRHAGE [None]
  - GOITRE [None]
